FAERS Safety Report 10310943 (Version 1)
Quarter: 2014Q3

REPORT INFORMATION
  Report Type: Spontaneous
  Country: US (occurrence: None)
  Receive Date: 20140716
  Receipt Date: 20140716
  Transmission Date: 20150326
  Serious: No
  Sender: FDA-Public Use
  Company Number: None

PATIENT
  Age: 80 Year
  Sex: Female
  Weight: 80 kg

DRUGS (2)
  1. COLCRYS [Suspect]
     Active Substance: COLCHICINE
     Indication: PERICARDITIS
     Dosage: 1 PILL, QD, ORAL
     Route: 048
  2. COLCHICINE. [Concomitant]
     Active Substance: COLCHICINE

REACTIONS (1)
  - Pancytopenia [None]

NARRATIVE: CASE EVENT DATE: 20140710
